FAERS Safety Report 9293348 (Version 1)
Quarter: 2013Q2

REPORT INFORMATION
  Report Type: Spontaneous
  Country: US (occurrence: US)
  Receive Date: 20130516
  Receipt Date: 20130516
  Transmission Date: 20140414
  Serious: No
  Sender: FDA-Public Use
  Company Number: US-TARO-2012P1036145

PATIENT
  Sex: Female

DRUGS (7)
  1. CARBAMAZEPINE EXTENDED RELEASE TABLETS USP 400MG [Suspect]
     Dates: end: 201201
  2. CARBAMAZEPINE EXTENDED RELEASE TABLETS USP 400MG [Suspect]
     Indication: MULTIPLE SCLEROSIS
     Dates: end: 201201
  3. CARBAMAZEPINE EXTENDED RELEASE TABLETS USP 400MG [Suspect]
     Dates: start: 201202
  4. CARBAMAZEPINE EXTENDED RELEASE TABLETS USP 400MG [Suspect]
     Indication: MULTIPLE SCLEROSIS
     Dates: start: 201202
  5. VITAMIN D [Concomitant]
  6. VITAMIN C [Concomitant]
  7. DILANTIN [Suspect]

REACTIONS (6)
  - Rash [Not Recovered/Not Resolved]
  - Skin exfoliation [Not Recovered/Not Resolved]
  - Erythema [Not Recovered/Not Resolved]
  - Pruritus [Not Recovered/Not Resolved]
  - Fatigue [Recovered/Resolved]
  - Thinking abnormal [Recovered/Resolved]
